FAERS Safety Report 4375074-7 (Version None)
Quarter: 2004Q2

REPORT INFORMATION
  Report Type: 
  Country: None (occurrence: None)
  Receive Date: 20040603
  Receipt Date: 20040526
  Transmission Date: 20050107
  Serious: Yes (Other)
  Sender: FDA-Public Use
  Company Number: 2004-05-1970

PATIENT
  Age: 58 Year
  Sex: Male
  Weight: 83 kg

DRUGS (2)
  1. INTERFERON ALFA-2B INJECTABLE POWDER [Concomitant]
     Indication: HEPATITIS C
     Dosage: 5 MU TIW SUBCUTANEOUS
     Route: 058
     Dates: start: 19980101
  2. RIBAVIRIN [Suspect]
     Indication: HEPATITIS C
     Dosage: 1000 MG QD ORAL
     Route: 048
     Dates: start: 19980101

REACTIONS (9)
  - ANAEMIA [None]
  - BACK PAIN [None]
  - HAEMOLYSIS [None]
  - INTERVERTEBRAL DISC PROTRUSION [None]
  - MARROW HYPERPLASIA [None]
  - NUCLEAR MAGNETIC RESONANCE IMAGING ABNORMAL [None]
  - OSTEOLYSIS [None]
  - OSTEOPENIA [None]
  - THERAPY NON-RESPONDER [None]
